FAERS Safety Report 8817304 (Version 1)
Quarter: 2012Q4

REPORT INFORMATION
  Report Type: 
  Country: US (occurrence: US)
  Receive Date: 20121004
  Receipt Date: 20121004
  Transmission Date: 20130627
  Serious: Yes (Hospitalization)
  Sender: FDA-Public Use
  Company Number: US-MYLANLABS-2012S1019887

PATIENT
  Age: 55 Year
  Sex: Male

DRUGS (3)
  1. FLUOROURACIL [Suspect]
     Indication: GASTRIC CANCER STAGE I
     Dosage: fluorouracil was infused
     Route: 065
  2. OXALIPLATIN [Concomitant]
     Indication: GASTRIC CANCER STAGE I
     Route: 065
  3. FOLINIC ACID [Concomitant]
     Indication: GASTRIC CANCER STAGE I
     Route: 065

REACTIONS (5)
  - Acute coronary syndrome [Recovering/Resolving]
  - Coronary artery thrombosis [Recovering/Resolving]
  - Nausea [Recovered/Resolved]
  - Hyperhidrosis [Recovered/Resolved]
  - Coronary artery disease [None]
